FAERS Safety Report 17418171 (Version 1)
Quarter: 2020Q1

REPORT INFORMATION
  Report Type: Report from Study
  Country: IT (occurrence: IT)
  Receive Date: 20200214
  Receipt Date: 20200214
  Transmission Date: 20200409
  Serious: Yes (Other)
  Sender: FDA-Public Use
  Company Number: IT-AUROBINDO-AUR-APL-2020-006988

PATIENT

DRUGS (5)
  1. DEXAMETHASONE. [Suspect]
     Active Substance: DEXAMETHASONE
     Indication: SALVAGE THERAPY
     Dosage: 40 MILLIGRAM, DAILY (ON DAY 1-4)  (REPEATED EVERY 21 DAYS)
     Route: 065
  2. OXALIPLATIN. [Suspect]
     Active Substance: OXALIPLATIN
     Indication: SALVAGE THERAPY
     Dosage: 130 MG/M2 ON DAY 1 (REPEATED EVERY 21 DAYS)
     Route: 065
  3. RITUXIMAB. [Suspect]
     Active Substance: RITUXIMAB
     Indication: SALVAGE THERAPY
     Dosage: 375 MG/M2 ON DAY 2  (REPEATED EVERY 21 DAYS)
     Route: 065
  4. CYTARABINE. [Suspect]
     Active Substance: CYTARABINE
     Indication: SALVAGE THERAPY
     Dosage: 2 GRAM PER SQUARE METRE, TWO TIMES A DAY (ON DAY 2)  (REPEATED EVERY 21 DAYS)
     Route: 065
  5. GRANULOCYTE COLONY STIMULATING FACTOR [Concomitant]
     Active Substance: GRANULOCYTE COLONY-STIMULATING FACTOR NOS
     Indication: PROPHYLAXIS
     Dosage: 5 MICROGRAM/KILOGRAM, DAILY (STARTED FROM DAY 8)
     Route: 058

REACTIONS (1)
  - Sepsis [Unknown]
